FAERS Safety Report 20640637 (Version 2)
Quarter: 2022Q2

REPORT INFORMATION
  Report Type: Spontaneous
  Country: US (occurrence: US)
  Receive Date: 20220327
  Receipt Date: 20220403
  Transmission Date: 20220720
  Serious: No
  Sender: FDA-Public Use
  Company Number: US-SANOFI-01025314

PATIENT
  Age: 77 Year
  Sex: Male

DRUGS (1)
  1. LANTUS SOLOSTAR [Suspect]
     Active Substance: INSULIN GLARGINE
     Indication: Type 2 diabetes mellitus
     Dosage: 40 IU, QD(DRUG STRUCTURE DOSAGE : 40 UNITS DRUG INTERVAL DOSAGE : ONCE DAILY DRUG TREATMENT DURATION

REACTIONS (2)
  - Panic reaction [Unknown]
  - Blood glucose increased [Unknown]
